FAERS Safety Report 24137747 (Version 1)
Quarter: 2024Q3

REPORT INFORMATION
  Report Type: Spontaneous
  Country: AU (occurrence: AU)
  Receive Date: 20240725
  Receipt Date: 20240725
  Transmission Date: 20241017
  Serious: Yes (Other)
  Sender: MERCK
  Company Number: AU-009507513-2407AUS011432

PATIENT
  Age: 64 Year
  Sex: Female

DRUGS (6)
  1. IVERMECTIN [Suspect]
     Active Substance: IVERMECTIN
     Indication: Hypereosinophilic syndrome
     Dosage: DOSE: 200 MILLIGRAM; INTERVAL: 2 DAY
     Route: 048
  2. ALBENDAZOLE [Suspect]
     Active Substance: ALBENDAZOLE
     Indication: Hypereosinophilic syndrome
     Dosage: DOSE: 400 MILLIGRAM; INTERVAL: 2 DAY
  3. DEXAMETHASONE [Suspect]
     Active Substance: DEXAMETHASONE
     Indication: Hypereosinophilic syndrome
     Dosage: DOSE: 4 MILLIGRAM; INTERVAL: 2 DAY
  4. MEPOLIZUMAB [Suspect]
     Active Substance: MEPOLIZUMAB
     Indication: Hypereosinophilic syndrome
     Dosage: DOSE: 300 MILLIGRAM; INTERVAL: 1 MONTH
     Dates: start: 202201
  5. MYCOPHENOLATE MOFETIL [Suspect]
     Active Substance: MYCOPHENOLATE MOFETIL
     Indication: Hypereosinophilic syndrome
     Dosage: DOSE: 1 GRAM; INTERVAL: 2 DAY
  6. PREDNISOLONE [Suspect]
     Active Substance: PREDNISOLONE
     Indication: Eosinophilic pneumonia
     Dosage: DOSE: 25 MILLIGRAM; INTERVAL: 1 DAY

REACTIONS (5)
  - Drug ineffective [Unknown]
  - Depression [Unknown]
  - Memory impairment [Unknown]
  - Neuropsychological symptoms [Unknown]
  - Off label use [Unknown]
